FAERS Safety Report 9797163 (Version 1)
Quarter: 2014Q1

REPORT INFORMATION
  Report Type: Spontaneous
  Country: AE (occurrence: AE)
  Receive Date: 20140106
  Receipt Date: 20140106
  Transmission Date: 20141002
  Serious: Yes (Other)
  Sender: FDA-Public Use
  Company Number: AE-ROCHE-1329444

PATIENT
  Sex: Male

DRUGS (1)
  1. PEGASYS [Suspect]
     Indication: PRODUCT USED FOR UNKNOWN INDICATION
     Dosage: TOOK INJECTION ON 02/JAN/2013
     Route: 065

REACTIONS (2)
  - Hepatic pain [Not Recovered/Not Resolved]
  - Bone pain [Recovered/Resolved]
